FAERS Safety Report 5876297-8 (Version None)
Quarter: 2008Q3

REPORT INFORMATION
  Report Type: 
  Country: None (occurrence: None)
  Receive Date: 20080910
  Receipt Date: 20080905
  Transmission Date: 20090109
  Serious: Yes (Life-Threatening)
  Sender: FDA-Public Use
  Company Number: AT-BAYER-200825792GPV

PATIENT
  Weight: 32 kg

DRUGS (1)
  1. AVELOX [Suspect]
     Indication: CHRONIC OBSTRUCTIVE PULMONARY DISEASE
     Route: 042
     Dates: start: 20080730, end: 20080805

REACTIONS (4)
  - HEPATIC ENZYME INCREASED [None]
  - HEPATOTOXICITY [None]
  - LIVER DISORDER [None]
  - PROTHROMBIN TIME SHORTENED [None]
